FAERS Safety Report 18635848 (Version 1)
Quarter: 2020Q4

REPORT INFORMATION
  Report Type: Spontaneous
  Country: US (occurrence: US)
  Receive Date: 20201218
  Receipt Date: 20201218
  Transmission Date: 20210114
  Serious: Yes (Death)
  Sender: FDA-Public Use
  Company Number: US-009507513-2012USA008449

PATIENT
  Age: 84 Year
  Sex: Male

DRUGS (5)
  1. OXYCODONE [Suspect]
     Active Substance: OXYCODONE
     Dosage: UNK, ROUTE: REPORTED AS INGESTION
     Route: 048
  2. ZALEPLON. [Suspect]
     Active Substance: ZALEPLON
     Dosage: UNK, ROUTE: REPORTED AS INGESTION
     Route: 048
  3. GABAPENTIN. [Suspect]
     Active Substance: GABAPENTIN
     Dosage: UNK, ROUTE: REPORTED AS INGESTION
     Route: 048
  4. REMERON [Suspect]
     Active Substance: MIRTAZAPINE
     Dosage: UNK, ROUTE: REPORTED AS INGESTION
     Route: 048
  5. DIPHENHYDRAMINE. [Suspect]
     Active Substance: DIPHENHYDRAMINE
     Dosage: UNK, ROUTE: REPORTED AS INGESTION
     Route: 048

REACTIONS (1)
  - Intentional product misuse [Fatal]
